FAERS Safety Report 25706076 (Version 1)
Quarter: 2025Q3

REPORT INFORMATION
  Report Type: Spontaneous
  Country: EU (occurrence: EU)
  Receive Date: 20250820
  Receipt Date: 20250820
  Transmission Date: 20251021
  Serious: Yes (Hospitalization)
  Sender: AIRGAS
  Company Number: EU-ALSI-2025000214

PATIENT
  Sex: Female

DRUGS (2)
  1. NITROUS OXIDE [Suspect]
     Active Substance: NITROUS OXIDE
     Indication: Product used for unknown indication
  2. PREGABALIN [Suspect]
     Active Substance: PREGABALIN

REACTIONS (3)
  - Aggression [Recovered/Resolved]
  - Hallucination, visual [Recovered/Resolved]
  - Paranoia [Recovered/Resolved]
